FAERS Safety Report 23432648 (Version 1)
Quarter: 2024Q1

REPORT INFORMATION
  Report Type: Report from Study
  Country: JP (occurrence: JP)
  Receive Date: 20240123
  Receipt Date: 20240123
  Transmission Date: 20240410
  Serious: Yes (Other)
  Sender: FDA-Public Use
  Company Number: JP-TAKEDA-2021TJP003367

PATIENT
  Age: 66 Year
  Sex: Male
  Weight: 61 kg

DRUGS (21)
  1. LEUPROLIDE ACETATE [Suspect]
     Active Substance: LEUPROLIDE ACETATE
     Indication: Bulbospinal muscular atrophy congenital
     Dosage: 11.25 MILLIGRAM, Q3MONTHS?1ST INJECTION
     Route: 058
     Dates: start: 20181024, end: 20181024
  2. LEUPROLIDE ACETATE [Suspect]
     Active Substance: LEUPROLIDE ACETATE
     Dosage: 2ND INJECTION
     Route: 058
     Dates: start: 20190116, end: 20190116
  3. LEUPROLIDE ACETATE [Suspect]
     Active Substance: LEUPROLIDE ACETATE
     Dosage: 3RD INJECTION
     Route: 058
     Dates: start: 20190410, end: 20190410
  4. LEUPROLIDE ACETATE [Suspect]
     Active Substance: LEUPROLIDE ACETATE
     Dosage: 4TH INJECTION
     Route: 058
     Dates: start: 20190710, end: 20190710
  5. LEUPROLIDE ACETATE [Suspect]
     Active Substance: LEUPROLIDE ACETATE
     Dosage: 5TH INJECTION
     Route: 058
     Dates: start: 20191009, end: 20191009
  6. LEUPROLIDE ACETATE [Suspect]
     Active Substance: LEUPROLIDE ACETATE
     Dosage: 6TH INJECTION
     Route: 058
     Dates: start: 20200108, end: 20200108
  7. LEUPROLIDE ACETATE [Suspect]
     Active Substance: LEUPROLIDE ACETATE
     Dosage: 7TH INJECTION
     Route: 058
     Dates: start: 20200406, end: 20200406
  8. LEUPROLIDE ACETATE [Suspect]
     Active Substance: LEUPROLIDE ACETATE
     Dosage: 8TH INJECTION
     Route: 058
     Dates: start: 20200706, end: 20200706
  9. LEUPROLIDE ACETATE [Suspect]
     Active Substance: LEUPROLIDE ACETATE
     Dosage: 9TH INJECTION
     Route: 058
     Dates: start: 20201005, end: 20201005
  10. LEUPROLIDE ACETATE [Suspect]
     Active Substance: LEUPROLIDE ACETATE
     Dosage: 10TH INJECTION
     Route: 058
     Dates: start: 20201221, end: 20201221
  11. LEUPROLIDE ACETATE [Suspect]
     Active Substance: LEUPROLIDE ACETATE
     Dosage: 11TH INJECTION
     Route: 058
     Dates: start: 20210315, end: 20210315
  12. LEUPROLIDE ACETATE [Suspect]
     Active Substance: LEUPROLIDE ACETATE
     Dosage: 12TH INJECTION
     Route: 058
     Dates: start: 20210607, end: 20210607
  13. LEUPROLIDE ACETATE [Suspect]
     Active Substance: LEUPROLIDE ACETATE
     Dosage: 13TH INJECTION
     Route: 058
     Dates: start: 20210906, end: 20210906
  14. LEUPROLIDE ACETATE [Suspect]
     Active Substance: LEUPROLIDE ACETATE
     Dosage: 14TH INJECTION
     Route: 058
     Dates: start: 20211206, end: 20211206
  15. LEUPROLIDE ACETATE [Suspect]
     Active Substance: LEUPROLIDE ACETATE
     Dosage: 15TH INJECTION
     Route: 058
     Dates: start: 20220307, end: 20220307
  16. LEUPROLIDE ACETATE [Suspect]
     Active Substance: LEUPROLIDE ACETATE
     Dosage: 16TH INJECTION
     Route: 058
     Dates: start: 20220606, end: 20220606
  17. LEUPROLIDE ACETATE [Suspect]
     Active Substance: LEUPROLIDE ACETATE
     Dosage: 17TH INJECTION
     Route: 058
     Dates: start: 20220905
  18. TERIPARATIDE ACETATE [Concomitant]
     Active Substance: TERIPARATIDE ACETATE
     Indication: Product used for unknown indication
     Dosage: UNK
     Route: 065
     Dates: start: 202302
  19. ELOBIXIBAT [Concomitant]
     Active Substance: ELOBIXIBAT
     Indication: Product used for unknown indication
     Dosage: 10 MILLIGRAM
     Route: 065
  20. MAGNESIUM OXIDE [Concomitant]
     Active Substance: MAGNESIUM OXIDE
     Indication: Constipation
     Dosage: 990 MILLIGRAM
     Route: 065
     Dates: start: 20190410
  21. AMBROXOL HYDROCHLORIDE [Concomitant]
     Active Substance: AMBROXOL HYDROCHLORIDE
     Indication: Bulbospinal muscular atrophy congenital
     Dosage: 45 MILLIGRAM
     Route: 065
     Dates: start: 20200406

REACTIONS (6)
  - Fall [Recovered/Resolved]
  - Feeling hot [Recovered/Resolved]
  - Feeling hot [Recovering/Resolving]
  - Constipation [Recovering/Resolving]
  - Hot flush [Recovered/Resolved]
  - Fracture [Recovered/Resolved]

NARRATIVE: CASE EVENT DATE: 20190116
